FAERS Safety Report 11935071 (Version 1)
Quarter: 2016Q1

REPORT INFORMATION
  Report Type: Spontaneous
  Country: US (occurrence: US)
  Receive Date: 20160121
  Receipt Date: 20160121
  Transmission Date: 20160526
  Serious: No
  Sender: FDA-Public Use
  Company Number: US-009507513-1512USA014573

PATIENT
  Weight: 109.3 kg

DRUGS (1)
  1. NEXPLANON [Suspect]
     Active Substance: ETONOGESTREL
     Dosage: 68 MG, IMPLANT / 3 YEARS
     Route: 059
     Dates: start: 20151021

REACTIONS (2)
  - Device breakage [Not Recovered/Not Resolved]
  - No adverse event [Unknown]
